FAERS Safety Report 7470726-4 (Version None)
Quarter: 2011Q2

REPORT INFORMATION
  Report Type: 
  Country: None (occurrence: None)
  Receive Date: 20110506
  Receipt Date: 20110506
  Transmission Date: 20111010
  Serious: Yes (Other)
  Sender: FDA-Public Use
  Company Number: None

PATIENT
  Age: 35 Year
  Sex: Female
  Weight: 49.8957 kg

DRUGS (1)
  1. TOPIRAMATE [Suspect]
     Indication: CLUSTER HEADACHE
     Dosage: 200MG DAILY PO
     Route: 048
     Dates: start: 20110101, end: 20110505

REACTIONS (1)
  - BLEPHAROSPASM [None]
